FAERS Safety Report 6136495-5 (Version None)
Quarter: 2009Q1

REPORT INFORMATION
  Report Type: 
  Country: None (occurrence: None)
  Receive Date: 20090330
  Receipt Date: 20090317
  Transmission Date: 20090719
  Serious: Yes (Hospitalization, Other)
  Sender: FDA-Public Use
  Company Number: US-PFIZER INC-2009184246

PATIENT
  Sex: Female
  Weight: 77.098 kg

DRUGS (3)
  1. SOLU-MEDROL [Suspect]
     Indication: PAIN
  2. PREDNISONE [Suspect]
  3. HUMIRA [Suspect]
     Indication: RHEUMATOID ARTHRITIS
     Dosage: 40 MG, UNK
     Dates: start: 19950101

REACTIONS (16)
  - ACTIVITIES OF DAILY LIVING IMPAIRED [None]
  - C-REACTIVE PROTEIN INCREASED [None]
  - DRUG INEFFECTIVE [None]
  - GASTRIC PH DECREASED [None]
  - GASTRITIS EROSIVE [None]
  - GASTROOESOPHAGEAL REFLUX DISEASE [None]
  - HAEMATEMESIS [None]
  - HAEMORRHAGE [None]
  - INFLUENZA LIKE ILLNESS [None]
  - MALAISE [None]
  - OESOPHAGITIS [None]
  - PAIN [None]
  - RHEUMATOID ARTHRITIS [None]
  - RHEUMATOID FACTOR POSITIVE [None]
  - SWELLING [None]
  - WEIGHT INCREASED [None]
